FAERS Safety Report 4850774-0 (Version None)
Quarter: 2005Q4

REPORT INFORMATION
  Report Type: 
  Country: None (occurrence: None)
  Receive Date: 20051212
  Receipt Date: 20051206
  Transmission Date: 20060501
  Serious: Yes (Hospitalization)
  Sender: FDA-Public Use
  Company Number: FR-AVENTIS-200514014FR

PATIENT
  Age: 80 Year
  Sex: Female

DRUGS (6)
  1. LOVENOX [Suspect]
     Indication: THROMBOSIS PROPHYLAXIS
     Route: 058
     Dates: start: 20050919, end: 20051007
  2. DI-ANTALVIC [Concomitant]
     Route: 048
     Dates: start: 20051004
  3. FUMAFER [Concomitant]
     Route: 048
     Dates: start: 20051004
  4. LEXOMIL [Concomitant]
     Route: 048
  5. ACETAMINOPHEN [Concomitant]
     Route: 048
     Dates: start: 20050519
  6. TANAKAN [Concomitant]
     Route: 048

REACTIONS (1)
  - THROMBOCYTHAEMIA [None]
